FAERS Safety Report 6914590-8 (Version None)
Quarter: 2010Q3

REPORT INFORMATION
  Report Type: 
  Country: None (occurrence: None)
  Receive Date: 20100809
  Receipt Date: 20100730
  Transmission Date: 20110219
  Serious: Yes (Hospitalization)
  Sender: FDA-Public Use
  Company Number: FR-JNJFOC-20100800053

PATIENT
  Sex: Male
  Weight: 65 kg

DRUGS (8)
  1. RISPERDAL [Suspect]
     Indication: PSYCHOMOTOR HYPERACTIVITY
     Route: 048
  2. ATARAX [Suspect]
     Indication: PSYCHOMOTOR HYPERACTIVITY
     Route: 048
  3. EQUANIL [Concomitant]
     Route: 065
  4. NEXIUM [Concomitant]
     Route: 065
  5. CANDESARTAN CILEXETIL [Concomitant]
     Route: 065
  6. DEXERYL [Concomitant]
     Route: 065
  7. IMMUGRIP [Concomitant]
     Route: 065
  8. PNEUMO 23 [Concomitant]
     Route: 065

REACTIONS (4)
  - CONFUSIONAL STATE [None]
  - EXTRAPYRAMIDAL DISORDER [None]
  - PSYCHOMOTOR SKILLS IMPAIRED [None]
  - WEIGHT DECREASED [None]
